FAERS Safety Report 5528672-9 (Version None)
Quarter: 2007Q4

REPORT INFORMATION
  Report Type: 
  Country: None (occurrence: None)
  Receive Date: 20071129
  Receipt Date: 20071127
  Transmission Date: 20080405
  Serious: Yes (Hospitalization)
  Sender: FDA-Public Use
  Company Number: AU-BRISTOL-MYERS SQUIBB COMPANY-13997358

PATIENT
  Age: 82 Year
  Sex: Female

DRUGS (6)
  1. AVAPRO-HCT TABS 300 MG/12.5 MG [Suspect]
     Indication: ESSENTIAL HYPERTENSION
     Dosage: 1 DF= 1 NO UNITS SPECIFIED
     Route: 048
     Dates: end: 20060311
  2. AROPAX [Suspect]
     Indication: DEPRESSION
     Route: 048
     Dates: start: 20060307, end: 20060307
  3. PLAVIX [Concomitant]
  4. NEXIUM [Concomitant]
  5. NOTEN [Concomitant]
  6. FOSAMAX [Concomitant]
     Dosage: ONCE WEEKLY TABLETS

REACTIONS (4)
  - ASTHENIA [None]
  - CONFUSIONAL STATE [None]
  - HYPONATRAEMIA [None]
  - LETHARGY [None]
